FAERS Safety Report 10603198 (Version 1)
Quarter: 2014Q4

REPORT INFORMATION
  Report Type: Spontaneous
  Country: FR (occurrence: FR)
  Receive Date: 20141124
  Receipt Date: 20141124
  Transmission Date: 20150529
  Serious: Yes (Life-Threatening)
  Sender: FDA-Public Use
  Company Number: FR-PFIZER INC-2014321725

PATIENT
  Age: 50 Year
  Sex: Male

DRUGS (5)
  1. SPECIAFOLDINE [Suspect]
     Active Substance: FOLIC ACID
     Dosage: 5 MG, 3X/WEEK
     Route: 048
  2. CELEBREX [Suspect]
     Active Substance: CELECOXIB
     Indication: ANKYLOSING SPONDYLITIS
     Dosage: 200 MG, 1X/DAY
     Route: 048
  3. METHOTREXATE [Suspect]
     Active Substance: METHOTREXATE
     Dosage: 2.5 MG, 6X/WEEK
     Route: 048
  4. REMICADE [Suspect]
     Active Substance: INFLIXIMAB
     Indication: ANKYLOSING SPONDYLITIS
     Dosage: 4 MG/KG, ONCE EVERY 6 WEEKS
     Dates: start: 2010
  5. HUMIRA [Suspect]
     Active Substance: ADALIMUMAB
     Dosage: UNK
     Route: 042
     Dates: start: 2007, end: 2010

REACTIONS (1)
  - Hodgkin^s disease [Not Recovered/Not Resolved]

NARRATIVE: CASE EVENT DATE: 201411
